FAERS Safety Report 23827335 (Version 1)
Quarter: 2024Q2

REPORT INFORMATION
  Report Type: Spontaneous
  Country: US (occurrence: US)
  Receive Date: 20240507
  Receipt Date: 20240507
  Transmission Date: 20240716
  Serious: No
  Sender: FDA-Public Use
  Company Number: US-ALKERMES INC.-ALK-2024-001135

PATIENT
  Age: 42 Year
  Sex: Male

DRUGS (1)
  1. VIVITROL [Suspect]
     Active Substance: NALTREXONE
     Indication: Alcohol use
     Dosage: 380 MILLIGRAM, QMO
     Route: 030

REACTIONS (3)
  - Needle issue [Recovered/Resolved]
  - Product preparation error [Recovered/Resolved]
  - Wrong technique in device usage process [Recovered/Resolved]

NARRATIVE: CASE EVENT DATE: 20240416
